FAERS Safety Report 6690120-3 (Version None)
Quarter: 2010Q2

REPORT INFORMATION
  Report Type: 
  Country: None (occurrence: None)
  Receive Date: 20100421
  Receipt Date: 20100414
  Transmission Date: 20101027
  Serious: Yes (Other)
  Sender: FDA-Public Use
  Company Number: PHEH2010US01310

PATIENT
  Sex: Female

DRUGS (5)
  1. EXELON [Suspect]
     Dosage: 4.6 MG, UNK
     Route: 062
  2. EXELON [Suspect]
     Dosage: 9.5 MG, QD
     Route: 062
  3. COZAAR [Concomitant]
  4. STATIN [Concomitant]
  5. THYROID THERAPY [Concomitant]

REACTIONS (3)
  - AMNESIA [None]
  - APPLICATION SITE REACTION [None]
  - PRURITUS [None]
